FAERS Safety Report 18458564 (Version 1)
Quarter: 2020Q4

REPORT INFORMATION
  Report Type: Spontaneous
  Country: CA (occurrence: CA)
  Receive Date: 20201103
  Receipt Date: 20201103
  Transmission Date: 20210114
  Serious: Yes (Other)
  Sender: FDA-Public Use
  Company Number: CA-JNJFOC-20201045589

PATIENT
  Sex: Female

DRUGS (4)
  1. REMICADE [Concomitant]
     Active Substance: INFLIXIMAB
     Route: 042
  2. PREDNISONE. [Concomitant]
     Active Substance: PREDNISONE
  3. INFLIXIMAB, RECOMBINANT [Suspect]
     Active Substance: INFLIXIMAB
     Indication: PRODUCT USED FOR UNKNOWN INDICATION
     Route: 042
  4. INFLIXIMAB, RECOMBINANT [Suspect]
     Active Substance: INFLIXIMAB
     Route: 042

REACTIONS (9)
  - Clostridium difficile infection [Unknown]
  - Arthralgia [Unknown]
  - Pseudopolyp [Unknown]
  - Adhesion [Unknown]
  - Large intestinal stenosis [Unknown]
  - Oral candidiasis [Unknown]
  - Diarrhoea [Unknown]
  - Off label use [Unknown]
  - Asthma [Unknown]
